FAERS Safety Report 7770133-0 (Version None)
Quarter: 2011Q3

REPORT INFORMATION
  Report Type: 
  Country: None (occurrence: None)
  Receive Date: 20110922
  Receipt Date: 20101221
  Transmission Date: 20111222
  Serious: No
  Sender: FDA-Public Use
  Company Number: US-ASTRAZENECA-2010SE60495

PATIENT
  Sex: Female
  Weight: 116.6 kg

DRUGS (1)
  1. SEROQUEL [Suspect]
     Indication: SCHIZOAFFECTIVE DISORDER
     Route: 048
     Dates: start: 20051221

REACTIONS (3)
  - INSOMNIA [None]
  - TREMOR [None]
  - BREAST DISCOMFORT [None]
